FAERS Safety Report 9997953 (Version 1)
Quarter: 2014Q1

REPORT INFORMATION
  Report Type: Spontaneous
  Country: US (occurrence: None)
  Receive Date: 20140304
  Receipt Date: 20140304
  Transmission Date: 20141002
  Serious: Yes (Other)
  Sender: FDA-Public Use
  Company Number: RB-52338-2013

PATIENT
  Sex: Female

DRUGS (7)
  1. SUBOXONE 8 MG [Suspect]
     Indication: DRUG DEPENDENCE
     Dosage: FILM
     Route: 064
     Dates: start: 201111, end: 201112
  2. BUPRENORPHINE 8 MG [Suspect]
     Indication: DRUG DEPENDENCE
     Dosage: TRANSMAMMARY
     Route: 064
     Dates: start: 201112, end: 20120820
  3. NICOTINE [Suspect]
     Indication: NICOTINE DEPENDENCE
     Route: 064
     Dates: start: 201111, end: 20120820
  4. PRENATAL VITAMINS [Suspect]
     Indication: PREGNANCY
     Dates: start: 201112, end: 20120820
  5. BENADRYL [Suspect]
     Indication: SEASONAL ALLERGY
     Dates: start: 201206, end: 20120820
  6. XANAX [Suspect]
     Indication: ANXIETY
     Dosage: AT BEDTIME, TRANSMAMMARY
     Route: 064
     Dates: start: 201111, end: 20120820
  7. XANAX [Suspect]
     Indication: SLEEP DISORDER
     Dosage: AT BEDTIME, TRANSMAMMARY
     Route: 064
     Dates: start: 201111, end: 20120820

REACTIONS (5)
  - Foetal exposure during pregnancy [None]
  - Drug withdrawal syndrome neonatal [None]
  - Exposure during breast feeding [None]
  - Crying [None]
  - Irritability [None]
